FAERS Safety Report 14991306 (Version 1)
Quarter: 2018Q2

REPORT INFORMATION
  Report Type: Spontaneous
  Country: DE (occurrence: DE)
  Receive Date: 20180608
  Receipt Date: 20180608
  Transmission Date: 20180711
  Serious: Yes (Life-Threatening, Hospitalization)
  Sender: FDA-Public Use
  Company Number: DE-PFIZER INC-2018234209

PATIENT
  Age: 78 Year
  Sex: Male
  Weight: 85 kg

DRUGS (5)
  1. PANTOZOL [Concomitant]
     Active Substance: PANTOPRAZOLE SODIUM
     Dosage: DAILY DOSE: 20 MG MILLGRAM(S) EVERY DAYS
  2. DELIX [Concomitant]
     Active Substance: RAMIPRIL
     Indication: HYPERTENSION
     Dosage: DAILY DOSE: 1 DF DOSAGE FORM EVERY DAYS
     Route: 048
  3. SUTENT [Suspect]
     Active Substance: SUNITINIB MALATE
     Indication: RENAL CELL CARCINOMA
     Dosage: 50 MG, UNK
     Route: 048
     Dates: start: 201710, end: 201803
  4. BELOC-ZOK MITE [Concomitant]
     Active Substance: METOPROLOL SUCCINATE
     Dosage: DAILY DOSE: 1 DF DOSAGE FORM EVERY DAYS
     Route: 048
  5. TOREM [Concomitant]
     Active Substance: TORSEMIDE
     Indication: HYPERTENSION
     Dosage: DAILY DOSE: 1 DF DOSAGE FORM EVERY DAYS
     Route: 048

REACTIONS (4)
  - Thrombocytopenia [Recovered/Resolved]
  - Acute hepatic failure [Recovered/Resolved]
  - Cardiac failure [Recovered/Resolved]
  - Hepatic congestion [Recovered/Resolved]

NARRATIVE: CASE EVENT DATE: 20180312
